FAERS Safety Report 16622489 (Version 2)
Quarter: 2019Q3

REPORT INFORMATION
  Report Type: Spontaneous
  Country: US (occurrence: US)
  Receive Date: 20190724
  Receipt Date: 20190821
  Transmission Date: 20191004
  Serious: No
  Sender: FDA-Public Use
  Company Number: US-CELGENEUS-USA-20190705904

PATIENT
  Age: 49 Year
  Sex: Male

DRUGS (6)
  1. HYDROCORTISONE 2.5% [Concomitant]
     Active Substance: HYDROCORTISONE
     Indication: RASH PRURITIC
     Dosage: 5 PERCENT
     Route: 061
     Dates: start: 20171127
  2. OTEZLA [Suspect]
     Active Substance: APREMILAST
     Indication: PSORIASIS
     Dosage: 60 MILLIGRAM
     Route: 048
     Dates: start: 20190604, end: 20190705
  3. METHOTREXATE. [Concomitant]
     Active Substance: METHOTREXATE
     Indication: PRODUCT USED FOR UNKNOWN INDICATION
     Route: 065
  4. OTEZLA [Suspect]
     Active Substance: APREMILAST
     Dosage: 60 MILLIGRAM
     Route: 048
     Dates: start: 20190708
  5. CLOBETASOL 0.05% [Concomitant]
     Active Substance: CLOBETASOL
     Indication: RASH PRURITIC
     Route: 061
  6. CLOBETASOL 0.05% [Concomitant]
     Active Substance: CLOBETASOL
     Route: 061
     Dates: start: 20171127

REACTIONS (3)
  - Hyperhidrosis [Recovered/Resolved]
  - Pyrexia [Recovered/Resolved]
  - Arthralgia [Recovered/Resolved]

NARRATIVE: CASE EVENT DATE: 20190705
